FAERS Safety Report 6665715-3 (Version None)
Quarter: 2010Q2

REPORT INFORMATION
  Report Type: 
  Country: None (occurrence: None)
  Receive Date: 20100402
  Receipt Date: 20100324
  Transmission Date: 20101027
  Serious: Yes (Hospitalization, Other)
  Sender: FDA-Public Use
  Company Number: FR-GENZYME-RENA-1000635

PATIENT
  Sex: Female
  Weight: 56.5 kg

DRUGS (4)
  1. RENAGEL [Suspect]
     Indication: HYPERPHOSPHATAEMIA
     Dosage: 4.8 G, QD
     Route: 048
     Dates: start: 20090102, end: 20100201
  2. LASIX [Suspect]
     Indication: POLYURIA
     Dosage: 500 MG, QD
     Route: 065
     Dates: start: 20090201
  3. CALCIDIA [Suspect]
     Indication: HYPOCALCAEMIA
     Dosage: UNK
     Route: 065
     Dates: start: 20090201
  4. IRON SULFATETHIAMIN COMPOUND TAB [Concomitant]
     Indication: DRUG USE FOR UNKNOWN INDICATION
     Dosage: 1X/MONTH
     Route: 042

REACTIONS (4)
  - COLITIS [None]
  - COLON ADENOMA [None]
  - DIARRHOEA [None]
  - MELANOSIS COLI [None]
